FAERS Safety Report 9922182 (Version 2)
Quarter: 2014Q1

REPORT INFORMATION
  Report Type: Spontaneous
  Country: US (occurrence: US)
  Receive Date: 20140225
  Receipt Date: 20140324
  Transmission Date: 20141002
  Serious: Yes (Other)
  Sender: FDA-Public Use
  Company Number: US-009507513-1402USA010488

PATIENT
  Age: 14 Year
  Sex: Female
  Weight: 63.95 kg

DRUGS (1)
  1. NEXPLANON [Suspect]
     Indication: CONTRACEPTION
     Dosage: AS DIRECTED
     Route: 059
     Dates: start: 20140121, end: 20140224

REACTIONS (3)
  - Implant site infection [Recovered/Resolved]
  - Implant site swelling [Recovered/Resolved]
  - Implant site inflammation [Recovered/Resolved]
